FAERS Safety Report 9292440 (Version 1)
Quarter: 2013Q2

REPORT INFORMATION
  Report Type: Spontaneous
  Country: GB (occurrence: None)
  Receive Date: 20130513
  Receipt Date: 20130513
  Transmission Date: 20140414
  Serious: Yes (Other)
  Sender: FDA-Public Use
  Company Number: AUR-APL-2013-03886

PATIENT
  Sex: Male

DRUGS (1)
  1. GABAPENTIN (GABAPENTIN) [Suspect]
     Indication: EPILEPSY

REACTIONS (2)
  - Aggression [None]
  - Injury [None]
